FAERS Safety Report 20474900 (Version 1)
Quarter: 2022Q1

REPORT INFORMATION
  Report Type: Spontaneous
  Country: CN (occurrence: CN)
  Receive Date: 20220215
  Receipt Date: 20220215
  Transmission Date: 20220423
  Serious: Yes (Other)
  Sender: FDA-Public Use
  Company Number: CN-PURDUE-USA-2022-0291306

PATIENT

DRUGS (1)
  1. LIDOCAINE [Suspect]
     Active Substance: LIDOCAINE
     Indication: Bronchoscopy
     Dosage: 1%, 3?9 ML, 300 MG (TOTAL DOSAGE)
     Route: 045

REACTIONS (7)
  - Asphyxia [Unknown]
  - Rhinalgia [Unknown]
  - Oropharyngeal pain [Unknown]
  - Procedural nausea [Unknown]
  - Procedural vomiting [Unknown]
  - Dizziness [Unknown]
  - Anaesthetic complication [Unknown]
